FAERS Safety Report 11377143 (Version 1)
Quarter: 2015Q3

REPORT INFORMATION
  Report Type: Report from Study
  Country: US (occurrence: US)
  Receive Date: 20150813
  Receipt Date: 20150813
  Transmission Date: 20151125
  Serious: Yes (Hospitalization)
  Sender: FDA-Public Use
  Company Number: US-GILEAD-2014-0120185

PATIENT
  Sex: Female

DRUGS (4)
  1. RANOLAZINE [Suspect]
     Active Substance: RANOLAZINE
     Indication: ARTERIOSCLEROSIS
     Dosage: 1 TABLET, BID
     Route: 048
     Dates: end: 201507
  2. RANOLAZINE [Suspect]
     Active Substance: RANOLAZINE
     Dosage: 1/2 TABLET, BID
     Route: 048
  3. NITRO                              /00003201/ [Concomitant]
     Dosage: UNK
     Route: 060
  4. NITRO                              /00003201/ [Concomitant]
     Dosage: UNK
     Route: 062

REACTIONS (5)
  - Nausea [Unknown]
  - Vision blurred [Unknown]
  - Chest pain [Unknown]
  - Hypotension [Unknown]
  - Dizziness [Unknown]

NARRATIVE: CASE EVENT DATE: 20150805
